FAERS Safety Report 4374540-8 (Version None)
Quarter: 2004Q2

REPORT INFORMATION
  Report Type: 
  Country: None (occurrence: None)
  Receive Date: 20040603
  Receipt Date: 20040518
  Transmission Date: 20050107
  Serious: Yes (Hospitalization)
  Sender: FDA-Public Use
  Company Number: 2004-DE-02947GD (0)

PATIENT

DRUGS (2)
  1. AZATHIOPRINE [Suspect]
     Indication: CROHN'S DISEASE
     Dosage: 100 MG (, ONCE DAILY),
  2. CORTICOSTEROIDS (CORTICOSTEROIDS) [Suspect]
     Indication: CROHN'S DISEASE

REACTIONS (4)
  - CANDIDIASIS [None]
  - PNEUMONIA [None]
  - SERRATIA INFECTION [None]
  - SPUTUM CULTURE POSITIVE [None]
